FAERS Safety Report 9786885 (Version 1)
Quarter: 2013Q4

REPORT INFORMATION
  Report Type: Spontaneous
  Country: US (occurrence: US)
  Receive Date: 20131227
  Receipt Date: 20131227
  Transmission Date: 20140711
  Serious: Yes (Other)
  Sender: FDA-Public Use
  Company Number: US-ABBVIE-13P-163-1181367-00

PATIENT
  Age: 27 Year
  Sex: Female
  Weight: 56.75 kg

DRUGS (5)
  1. HUMIRA [Suspect]
     Indication: RHEUMATOID ARTHRITIS
     Route: 058
     Dates: start: 201211
  2. LYRICA [Concomitant]
     Indication: MIGRAINE
  3. LYRICA [Concomitant]
     Indication: PAIN
  4. DEXILANT [Concomitant]
     Indication: GASTROOESOPHAGEAL REFLUX DISEASE
  5. ORTHO TRI-CYCLEN LO [Concomitant]
     Indication: HORMONE THERAPY

REACTIONS (6)
  - Supraventricular tachycardia [Not Recovered/Not Resolved]
  - Injection site bruising [Not Recovered/Not Resolved]
  - Injection site pain [Not Recovered/Not Resolved]
  - Syncope [Recovered/Resolved]
  - Cardiac disorder [Not Recovered/Not Resolved]
  - Nausea [Recovered/Resolved]
